FAERS Safety Report 12512410 (Version 2)
Quarter: 2016Q4

REPORT INFORMATION
  Report Type: Spontaneous
  Country: US (occurrence: US)
  Receive Date: 20160630
  Receipt Date: 20161104
  Transmission Date: 20170207
  Serious: Yes (Hospitalization)
  Sender: FDA-Public Use
  Company Number: US-JNJFOC-20160521451

PATIENT
  Age: 66 Year

DRUGS (1)
  1. XARELTO [Suspect]
     Active Substance: RIVAROXABAN
     Indication: DEEP VEIN THROMBOSIS
     Route: 048
     Dates: start: 20140610, end: 20151121

REACTIONS (2)
  - Internal haemorrhage [Unknown]
  - Haematoma [Unknown]

NARRATIVE: CASE EVENT DATE: 20151121
